FAERS Safety Report 6202310-4 (Version None)
Quarter: 2009Q2

REPORT INFORMATION
  Report Type: 
  Country: None (occurrence: None)
  Receive Date: 20090520
  Receipt Date: 20090505
  Transmission Date: 20091009
  Serious: Yes (Life-Threatening, Hospitalization)
  Sender: FDA-Public Use
  Company Number: 2009-0012

PATIENT
  Age: 8 Year
  Sex: Female

DRUGS (2)
  1. LORATADINE [Suspect]
     Indication: MULTIPLE ALLERGIES
     Dosage: 1 TSP DAILY
  2. PATANOL [Concomitant]

REACTIONS (5)
  - ANAPHYLACTIC SHOCK [None]
  - COUGH [None]
  - DRUG HYPERSENSITIVITY [None]
  - DYSPNOEA [None]
  - SKIN TEST POSITIVE [None]
